FAERS Safety Report 20959436 (Version 2)
Quarter: 2022Q3

REPORT INFORMATION
  Report Type: Spontaneous
  Country: US (occurrence: US)
  Receive Date: 20220614
  Receipt Date: 20220715
  Transmission Date: 20221027
  Serious: No
  Sender: FDA-Public Use
  Company Number: US-BAYER-2022A070361

PATIENT
  Age: 69 Year
  Sex: Male

DRUGS (1)
  1. NUBEQA [Suspect]
     Active Substance: DAROLUTAMIDE
     Dosage: 2 DF, BID (2 PILLS IN THE MORNING, 2 PILLS AT NIGHT)
     Dates: start: 20220504, end: 20220507

REACTIONS (2)
  - Peripheral swelling [Not Recovered/Not Resolved]
  - Dysuria [Recovered/Resolved]

NARRATIVE: CASE EVENT DATE: 20220507
